FAERS Safety Report 7286975-4 (Version None)
Quarter: 2011Q1

REPORT INFORMATION
  Report Type: 
  Country: None (occurrence: None)
  Receive Date: 20110211
  Receipt Date: 20110127
  Transmission Date: 20110831
  Serious: No
  Sender: FDA-Public Use
  Company Number: US-BIOGENIDEC-2011BI002845

PATIENT
  Age: 41 Year
  Sex: Female

DRUGS (3)
  1. TYSABRI [Suspect]
     Route: 042
     Dates: start: 20080917, end: 20081022
  2. TYSABRI [Suspect]
     Route: 042
     Dates: start: 20071130, end: 20080407
  3. TYSABRI [Suspect]
     Indication: MULTIPLE SCLEROSIS
     Route: 042
     Dates: start: 20090102

REACTIONS (5)
  - MULTIPLE SCLEROSIS RELAPSE [None]
  - FATIGUE [None]
  - FEELING COLD [None]
  - NASOPHARYNGITIS [None]
  - MEMORY IMPAIRMENT [None]
